FAERS Safety Report 9511781 (Version 2)
Quarter: 2013Q4

REPORT INFORMATION
  Report Type: Report from Study
  Country: JP (occurrence: JP)
  Receive Date: 20130910
  Receipt Date: 20131203
  Transmission Date: 20140711
  Serious: Yes (Hospitalization)
  Sender: FDA-Public Use
  Company Number: JP-ELI_LILLY_AND_COMPANY-JP201309000748

PATIENT
  Sex: Female

DRUGS (2)
  1. TERIPARATIDE [Suspect]
     Indication: SPINAL FRACTURE
     Dosage: UNK
     Route: 058
     Dates: start: 2013
  2. TERIPARATIDE [Suspect]
     Indication: ARTHROPATHY

REACTIONS (2)
  - Spinal fracture [Not Recovered/Not Resolved]
  - Off label use [Not Recovered/Not Resolved]
